FAERS Safety Report 4735337-X (Version None)
Quarter: 2005Q3

REPORT INFORMATION
  Report Type: 
  Country: None (occurrence: None)
  Receive Date: 20050805
  Receipt Date: 20050727
  Transmission Date: 20060218
  Serious: Yes (Life-Threatening, Hospitalization)
  Sender: FDA-Public Use
  Company Number: FR-BRISTOL-MYERS SQUIBB COMPANY-13053087

PATIENT
  Age: 74 Year
  Sex: Female

DRUGS (2)
  1. PARAPLATIN [Suspect]
     Indication: BLADDER CANCER
     Route: 042
     Dates: start: 20050630, end: 20050630
  2. GEMCITABINE [Suspect]
     Indication: BLADDER CANCER
     Route: 042
     Dates: start: 20050629, end: 20050706

REACTIONS (3)
  - COMA [None]
  - CONVULSION [None]
  - ENCEPHALITIS [None]
